FAERS Safety Report 8125174-0 (Version None)
Quarter: 2012Q1

REPORT INFORMATION
  Report Type: 
  Country: None (occurrence: None)
  Receive Date: 20120206
  Receipt Date: 20120126
  Transmission Date: 20120608
  Serious: Yes (Hospitalization)
  Sender: FDA-Public Use
  Company Number: 2010EU003255

PATIENT
  Age: 9 Year
  Sex: Female

DRUGS (1)
  1. TACROLIMUS [Suspect]
     Indication: DERMATITIS ATOPIC
     Dosage: BID, TOPICAL
     Route: 061
     Dates: start: 20070425, end: 20110620

REACTIONS (1)
  - TONSILLITIS [None]
